FAERS Safety Report 8840800 (Version 1)
Quarter: 2012Q4

REPORT INFORMATION
  Report Type: 
  Country: US (occurrence: US)
  Receive Date: 20121015
  Receipt Date: 20121015
  Transmission Date: 20130627
  Serious: No
  Sender: FDA-Public Use
  Company Number: US-009507513-1210USA004512

PATIENT

DRUGS (4)
  1. FOSAMAX [Suspect]
     Dosage: UNK
     Dates: end: 20120301
  2. FOSAMAX [Suspect]
     Dosage: UNK
     Dates: end: 20120301
  3. BONIVA [Suspect]
     Dosage: UNK
     Dates: end: 20120301
  4. IBANDRONATE SODIUM [Suspect]
     Dosage: UNK
     Dates: end: 20120301

REACTIONS (2)
  - Spinal fracture [Unknown]
  - Bone disorder [Unknown]
